FAERS Safety Report 7761023 (Version 5)
Quarter: 2013Q4

REPORT INFORMATION
  Report Type: Report from Study
  Country: GB (occurrence: GB)
  Receive Date: 20110114
  Receipt Date: 20131127
  Transmission Date: 20140711
  Serious: Yes (Hospitalization)
  Sender: FDA-Public Use
  Company Number: GB-PFIZER INC-2011005444

PATIENT
  Age: 64 Year
  Sex: Male

DRUGS (5)
  1. SUNITINIB MALATE [Suspect]
     Indication: TRANSITIONAL CELL CARCINOMA
     Dosage: 25 MG, UNK
     Route: 048
     Dates: start: 20100911, end: 20110105
  2. AMLODIPINE BESILATE [Suspect]
     Dosage: 10 MG, DAILY
     Route: 048
     Dates: start: 20090305, end: 20110105
  3. METFORMIN PFIZER [Suspect]
     Dosage: 500 MG, DAILY
     Route: 048
     Dates: start: 20090407, end: 20110105
  4. BENDROFLUMETHIAZIDE [Suspect]
     Dosage: 25 MG, DAILY
     Route: 048
     Dates: start: 20090813, end: 20110105
  5. CANDESARTAN [Concomitant]
     Dosage: 16 MG, DAILY
     Route: 048
     Dates: start: 20091116, end: 20110105

REACTIONS (1)
  - Pyrexia [Recovered/Resolved]
